FAERS Safety Report 9437538 (Version 1)
Quarter: 2013Q3

REPORT INFORMATION
  Report Type: Spontaneous
  Country: US (occurrence: None)
  Receive Date: 20130731
  Receipt Date: 20130731
  Transmission Date: 20140515
  Serious: Yes (Hospitalization)
  Sender: FDA-Public Use
  Company Number: 20130624

PATIENT
  Age: 79 Year
  Sex: Female

DRUGS (1)
  1. GUAIFENESIN [Suspect]

REACTIONS (10)
  - Vomiting [None]
  - Dizziness [None]
  - Depression [None]
  - Hypoxia [None]
  - Dyspnoea [None]
  - Somnolence [None]
  - Lethargy [None]
  - Anaphylactic reaction [None]
  - Hypothermia [None]
  - Unevaluable event [None]
